FAERS Safety Report 17675665 (Version 1)
Quarter: 2020Q2

REPORT INFORMATION
  Report Type: Spontaneous
  Country: US (occurrence: US)
  Receive Date: 20200416
  Receipt Date: 20200416
  Transmission Date: 20200714
  Serious: Yes (Hospitalization)
  Sender: FDA-Public Use
  Company Number: None

PATIENT
  Age: 22 Year
  Sex: Female

DRUGS (3)
  1. NAPROXEN. [Suspect]
     Active Substance: NAPROXEN
  2. MELATONIN [Suspect]
     Active Substance: MELATONIN
  3. MIDOL [Suspect]
     Active Substance: IBUPROFEN

REACTIONS (4)
  - Diarrhoea [None]
  - Abdominal pain [None]
  - Intentional overdose [None]
  - Suicidal behaviour [None]

NARRATIVE: CASE EVENT DATE: 20200209
